FAERS Safety Report 5421920-5 (Version None)
Quarter: 2007Q3

REPORT INFORMATION
  Report Type: 
  Country: None (occurrence: None)
  Receive Date: 20070820
  Receipt Date: 20070820
  Transmission Date: 20080115
  Serious: Yes (Hospitalization)
  Sender: FDA-Public Use
  Company Number: None

PATIENT
  Sex: Female

DRUGS (1)
  1. HUMIRA [Suspect]
     Indication: RHEUMATOID ARTHRITIS
     Dosage: 40MG EVERY 2 WEEKS SUBQ
     Route: 058
     Dates: start: 20070601

REACTIONS (2)
  - HYPOAESTHESIA [None]
  - SWOLLEN TONGUE [None]
